FAERS Safety Report 7240985-1 (Version None)
Quarter: 2011Q1

REPORT INFORMATION
  Report Type: 
  Country: None (occurrence: None)
  Receive Date: 20110124
  Receipt Date: 20110117
  Transmission Date: 20110831
  Serious: Yes (Death, Hospitalization)
  Sender: FDA-Public Use
  Company Number: ES-ELI_LILLY_AND_COMPANY-ES201011005045

PATIENT
  Sex: Male

DRUGS (16)
  1. PEMETREXED [Suspect]
     Dosage: 870 MG, EVERY 21 DAYS
     Route: 042
     Dates: start: 20100929, end: 20101020
  2. VITAMIN B-12 [Concomitant]
     Indication: PROPHYLAXIS
     Dates: start: 20100701
  3. VIT B6 [Concomitant]
  4. PRIMPERAN TAB [Concomitant]
  5. FOLIC ACID [Concomitant]
     Indication: PROPHYLAXIS
     Dates: start: 20100701
  6. FENTANYL [Concomitant]
     Indication: PAIN
     Dates: start: 20100915
  7. PEMETREXED [Suspect]
     Indication: NON-SMALL CELL LUNG CANCER STAGE III
     Dosage: 930 MG, EVERY 21 DAYS
     Route: 042
     Dates: start: 20100712, end: 20100828
  8. RADIATION [Suspect]
     Indication: NON-SMALL CELL LUNG CANCER STAGE III
     Dosage: 2 GY, DAILY (1/D)
     Dates: start: 20100712
  9. VITAMIN B1 TAB [Concomitant]
  10. CISPLATIN [Suspect]
     Indication: NON-SMALL CELL LUNG CANCER STAGE III
     Dosage: 139.5 MG, EVERY 21 DAYS
     Route: 042
     Dates: start: 20100712
  11. CLEXANE [Concomitant]
     Indication: DEEP VEIN THROMBOSIS
     Dates: start: 20100824
  12. DEXAMETHASONE [Concomitant]
     Indication: PROPHYLAXIS
     Dosage: UNK, UNK
     Dates: start: 20100711, end: 20100823
  13. OMEPRAZOLE [Concomitant]
     Indication: PROPHYLAXIS
     Dates: start: 20100712
  14. ENANTYUM [Concomitant]
     Indication: PAIN
     Dates: start: 20101005, end: 20101017
  15. VENTOLIN                                /SCH/ [Concomitant]
  16. ATROVENT [Concomitant]

REACTIONS (2)
  - RESPIRATORY FAILURE [None]
  - PNEUMONITIS [None]
